FAERS Safety Report 4460194-9 (Version None)
Quarter: 2004Q3

REPORT INFORMATION
  Report Type: 
  Country: None (occurrence: None)
  Receive Date: 20040928
  Receipt Date: 20040122
  Transmission Date: 20050211
  Serious: No
  Sender: FDA-Public Use
  Company Number: US-GLAXOSMITHKLINE-A0494687A

PATIENT
  Age: 59 Year
  Sex: Female

DRUGS (6)
  1. SEREVENT [Suspect]
     Dosage: 1PUFF PER DAY
     Route: 055
     Dates: start: 20040121
  2. ALBUTEROL [Concomitant]
  3. IPRATROPIUM BROMIDE [Concomitant]
     Route: 055
  4. QVAR 40 [Concomitant]
  5. COVERA-HS [Concomitant]
  6. DIGOXIN [Concomitant]

REACTIONS (4)
  - DRUG INEFFECTIVE [None]
  - DRY MOUTH [None]
  - PALPITATIONS [None]
  - TACHYCARDIA [None]
